FAERS Safety Report 5513168-0 (Version None)
Quarter: 2007Q4

REPORT INFORMATION
  Report Type: 
  Country: None (occurrence: None)
  Receive Date: 20071112
  Receipt Date: 20070521
  Transmission Date: 20080405
  Serious: No
  Sender: FDA-Public Use
  Company Number: US-BRISTOL-MYERS SQUIBB COMPANY-13786553

PATIENT
  Age: 53 Year
  Sex: Male
  Weight: 78 kg

DRUGS (6)
  1. SUSTIVA [Suspect]
     Indication: HIV INFECTION
     Dates: start: 20070201
  2. NORVASC [Concomitant]
  3. ZOLOFT [Concomitant]
  4. OMEGA 3 FATTY ACID [Concomitant]
  5. VITAMIN B-12 [Concomitant]
  6. TRUVADA [Concomitant]

REACTIONS (2)
  - ABNORMAL DREAMS [None]
  - VIRAL LOAD INCREASED [None]
